FAERS Safety Report 9914239 (Version 4)
Quarter: 2014Q2

REPORT INFORMATION
  Report Type: Spontaneous
  Country: US (occurrence: None)
  Receive Date: 20140218
  Receipt Date: 20140410
  Transmission Date: 20141212
  Serious: Yes (Life-Threatening, Hospitalization, Other)
  Sender: FDA-Public Use
  Company Number: AUR-APL-2014-01646

PATIENT
  Age: 72 Year
  Sex: Male
  Weight: 71.93 kg

DRUGS (8)
  1. HYDROCODONE+PARACETAMOL (PARACETAMOL, HYDROCODONE) [Suspect]
     Indication: PAIN
     Dosage: ?1-2 TAB 5/500 325 MG, Q4-6 HRS PRN MAX 8 DAILY, ORAL
     Route: 048
     Dates: start: 20090805
  2. AMBIEN [Suspect]
     Indication: INSOMNIA
     Dosage: (AS REQUIRED), ORAL
     Route: 048
     Dates: start: 20090823, end: 20131219
  3. TOPROL [Suspect]
     Indication: HYPERTENSION
     Dosage: (25 MG, 1 D), ORAL (TABLETS SR 24 HR)
     Route: 048
     Dates: start: 20100225
  4. B COMPLEX (NICOTINAM. W/PYRIDOXI. HCL/RIBOFL./THIAM. HCL) [Concomitant]
  5. LOMOTIL (LOMOTIL) [Concomitant]
  6. PULMICORT (BUDESONIDE) [Concomitant]
  7. TUDORZA (ACLIDINIUM BROMIDE) [Concomitant]
  8. VITAMIN C (ASCORBIC ACID) [Concomitant]

REACTIONS (9)
  - Cerebrovascular accident [None]
  - Atrial fibrillation [None]
  - Blindness unilateral [None]
  - Fatigue [None]
  - Dizziness [None]
  - Dehydration [None]
  - Dyspnoea [None]
  - Hypotension [None]
  - Syncope [None]
